APPROVED DRUG PRODUCT: DECITABINE
Active Ingredient: DECITABINE
Strength: 50MG/VIAL
Dosage Form/Route: INJECTABLE;INTRAVENOUS
Application: A217814 | Product #001 | TE Code: AP
Applicant: RELIANCE LIFE SCIENCES PRIVATE LTD
Approved: Dec 19, 2025 | RLD: No | RS: No | Type: RX